FAERS Safety Report 4338686-2 (Version None)
Quarter: 2004Q2

REPORT INFORMATION
  Report Type: 
  Country: None (occurrence: None)
  Receive Date: 20040409
  Receipt Date: 20040326
  Transmission Date: 20050107
  Serious: Yes (Disabling)
  Sender: FDA-Public Use
  Company Number: 2003-00691FE

PATIENT
  Age: 52 Year
  Sex: Female

DRUGS (6)
  1. PENTASA [Suspect]
     Indication: COLITIS ULCERATIVE
     Dosage: 2 G/1 G/3 G ORALLY
     Route: 048
     Dates: end: 20030912
  2. PENTASA [Suspect]
     Indication: COLITIS ULCERATIVE
     Dosage: 2 G/1 G/3 G ORALLY
     Route: 048
     Dates: start: 20010401
  3. OMEPRAZOLE [Concomitant]
  4. DIOSMIN [Concomitant]
  5. HYDROCORTISONE ACETATE [Concomitant]
  6. ACETAMINOPHEN [Concomitant]

REACTIONS (7)
  - ALDOLASE INCREASED [None]
  - ASTHENIA [None]
  - BLOOD CREATINE PHOSPHOKINASE INCREASED [None]
  - BLOOD CREATINE PHOSPHOKINASE MB INCREASED [None]
  - BLOOD LACTATE DEHYDROGENASE INCREASED [None]
  - MYALGIA [None]
  - MYOSITIS [None]
